FAERS Safety Report 10018435 (Version 1)
Quarter: 2014Q1

REPORT INFORMATION
  Report Type: Spontaneous
  Country: US (occurrence: US)
  Receive Date: 20140318
  Receipt Date: 20140318
  Transmission Date: 20141002
  Serious: Yes (Hospitalization, Other)
  Sender: FDA-Public Use
  Company Number: US-TARO PHARMACEUTICALS U.S.A., INC-2014SUN00563

PATIENT
  Age: 53 Year
  Sex: Male

DRUGS (6)
  1. WARFARIN [Suspect]
     Indication: ANTICOAGULANT THERAPY
     Dosage: 2 MG ON MON, WED, FRIDAY AND 1 MG ON REMAINING DAYS
     Route: 048
  2. AMOXICILLIN/CLAVULANIC ACID 500/125MG [Interacting]
     Indication: TOOTH ABSCESS
     Dosage: 500/125MG TWICE DAILY
     Route: 065
  3. ALBUTEROL INHALER [Concomitant]
     Dosage: AS NEEDED
  4. TRAZODONE [Concomitant]
     Dosage: 50 MG, OD AT BEDTIME
     Route: 048
  5. CHLORDIAZEPOXIDE [Concomitant]
     Dosage: 10 MG, 1 TO 3 TIMES A DAY
     Route: 048
  6. VICODIN ES 7.5/750 [Concomitant]
     Indication: PAIN
     Dosage: 1 DF, PRN
     Route: 048

REACTIONS (6)
  - Drug interaction [Recovered/Resolved]
  - Prothrombin time prolonged [Recovered/Resolved]
  - International normalised ratio increased [Recovered/Resolved]
  - Post procedural haemorrhage [Recovered/Resolved]
  - Haematuria [Recovered/Resolved]
  - Contusion [Recovered/Resolved]
